FAERS Safety Report 5104009-4 (Version None)
Quarter: 2006Q3

REPORT INFORMATION
  Report Type: 
  Country: None (occurrence: None)
  Receive Date: 20060908
  Receipt Date: 20060821
  Transmission Date: 20061208
  Serious: Yes (Hospitalization, Disabling, Other)
  Sender: FDA-Public Use
  Company Number: 2006PV019842

PATIENT
  Age: 61 Year
  Sex: Male
  Weight: 120.2032 kg

DRUGS (2)
  1. BYETTA [Suspect]
     Indication: DIABETES MELLITUS NON-INSULIN-DEPENDENT
     Dosage: 5 MCG; BID; SC
     Route: 058
     Dates: start: 20060209, end: 20060215
  2. INSULIN [Concomitant]

REACTIONS (8)
  - BLINDNESS TRANSIENT [None]
  - BLINDNESS UNILATERAL [None]
  - BLOOD GLUCOSE INCREASED [None]
  - CONDITION AGGRAVATED [None]
  - EYE PAIN [None]
  - HEADACHE [None]
  - NAUSEA [None]
  - SURGERY [None]
